FAERS Safety Report 13131335 (Version 1)
Quarter: 2017Q1

REPORT INFORMATION
  Report Type: Spontaneous
  Country: AU (occurrence: AU)
  Receive Date: 20170119
  Receipt Date: 20170119
  Transmission Date: 20170428
  Serious: Yes (Other)
  Sender: FDA-Public Use
  Company Number: AU-OTSUKA-2017_000951

PATIENT

DRUGS (2)
  1. BUSULFEX [Suspect]
     Active Substance: BUSULFAN
     Indication: MYELOPROLIFERATIVE NEOPLASM
     Dosage: UNK
     Route: 065
  2. BUSULFEX [Suspect]
     Active Substance: BUSULFAN
     Indication: PHILADELPHIA CHROMOSOME NEGATIVE

REACTIONS (1)
  - Haemorrhage [Unknown]
